FAERS Safety Report 9432601 (Version 1)
Quarter: 2013Q3

REPORT INFORMATION
  Report Type: Spontaneous
  Country: DK (occurrence: CN)
  Receive Date: 20130731
  Receipt Date: 20130731
  Transmission Date: 20140515
  Serious: Yes (Death)
  Sender: FDA-Public Use
  Company Number: CN-FRI-1000047370

PATIENT
  Sex: 0

DRUGS (1)
  1. DINOPROSTONE [Suspect]
     Route: 064
     Dates: start: 2012, end: 2012

REACTIONS (1)
  - Sudden infant death syndrome [Fatal]
